FAERS Safety Report 9820259 (Version 1)
Quarter: 2013Q4

REPORT INFORMATION
  Report Type: Spontaneous
  Country: GB (occurrence: None)
  Receive Date: 20131024
  Receipt Date: 20131024
  Transmission Date: 20140711
  Serious: Yes (Other)
  Sender: FDA-Public Use
  Company Number: E2B_00001078

PATIENT
  Age: 50 Year
  Sex: Male

DRUGS (5)
  1. QUETIAPINE [Suspect]
     Indication: MAJOR DEPRESSION
     Route: 048
     Dates: start: 20120416
  2. SILDENAFIL [Concomitant]
  3. VENLAFAXINE (UNKNOWN)  (VENLAFAXINE HYDROCHLORIDE) [Concomitant]
  4. OMEPRAZOLE [Concomitant]
  5. DIAZEPAM [Concomitant]

REACTIONS (1)
  - Lipids increased [None]
